FAERS Safety Report 20872196 (Version 1)
Quarter: 2022Q2

REPORT INFORMATION
  Report Type: Spontaneous
  Country: US (occurrence: None)
  Receive Date: 20220525
  Receipt Date: 20220525
  Transmission Date: 20220721
  Serious: No
  Sender: FDA-Public Use
  Company Number: 2022A187947

PATIENT
  Age: 53 Year
  Sex: Male

DRUGS (1)
  1. BRILINTA [Suspect]
     Active Substance: TICAGRELOR
     Indication: Myocardial infarction
     Route: 048
     Dates: start: 20200514

REACTIONS (5)
  - Choking [Recovered/Resolved]
  - Abnormal withdrawal bleeding [Recovered/Resolved]
  - Eye haemorrhage [Recovered/Resolved]
  - Epistaxis [Recovered/Resolved]
  - Blood loss anaemia [Recovered/Resolved]

NARRATIVE: CASE EVENT DATE: 20220511
